FAERS Safety Report 8175091-5 (Version None)
Quarter: 2012Q1

REPORT INFORMATION
  Report Type: 
  Country: None (occurrence: None)
  Receive Date: 20120229
  Receipt Date: 20120222
  Transmission Date: 20120608
  Serious: Yes (Hospitalization, Other)
  Sender: FDA-Public Use
  Company Number: PHEH2011US00731

PATIENT
  Sex: Female

DRUGS (11)
  1. GILENYA [Suspect]
     Indication: MULTIPLE SCLEROSIS
  2. BACTRIM [Concomitant]
  3. AVONEX [Suspect]
  4. PREDNISONE TAB [Concomitant]
  5. TREXIMET [Suspect]
  6. NEXIUM [Suspect]
  7. GILENYA [Suspect]
     Indication: RELAPSING-REMITTING MULTIPLE SCLEROSIS
     Dosage: 0.5 MG, QD
     Route: 048
     Dates: start: 20110127, end: 20110727
  8. PREDNISOLONE [Concomitant]
  9. CLINDAMYCIN [Concomitant]
  10. NAPROXEN (ALEVE) [Concomitant]
  11. ATROPINE [Concomitant]

REACTIONS (20)
  - MACULAR OEDEMA [None]
  - VITRITIS [None]
  - WHITE BLOOD CELL COUNT DECREASED [None]
  - MONOCYTE COUNT INCREASED [None]
  - CHOROIDITIS [None]
  - RED BLOOD CELL COUNT DECREASED [None]
  - RETINAL OEDEMA [None]
  - EYE HAEMORRHAGE [None]
  - MEAN CELL HAEMOGLOBIN CONCENTRATION DECREASED [None]
  - EYE INFLAMMATION [None]
  - VISUAL ACUITY REDUCED [None]
  - EYE INFECTION TOXOPLASMAL [None]
  - VISION BLURRED [None]
  - NEUTROPHIL COUNT DECREASED [None]
  - BASOPHIL COUNT DECREASED [None]
  - MACULAR FIBROSIS [None]
  - MACULAR SCAR [None]
  - TOXOPLASMA SEROLOGY POSITIVE [None]
  - EYE INFECTION [None]
  - VITREOUS FLOATERS [None]
